FAERS Safety Report 5225625-5 (Version None)
Quarter: 2007Q1

REPORT INFORMATION
  Report Type: 
  Country: None (occurrence: None)
  Receive Date: 20070129
  Receipt Date: 20070118
  Transmission Date: 20070707
  Serious: Yes (Hospitalization)
  Sender: FDA-Public Use
  Company Number: 234390

PATIENT
  Age: 17 Year
  Sex: Female

DRUGS (2)
  1. XOLAIR [Suspect]
     Indication: DRUG USE FOR UNKNOWN INDICATION
     Dosage: 200 MG, 2/WEEK,
     Dates: start: 20061123
  2. ANTIBIOTICS (ANTIBIOTICS NOS) [Concomitant]

REACTIONS (2)
  - INFLUENZA LIKE ILLNESS [None]
  - PULMONARY EMBOLISM [None]
